FAERS Safety Report 4917119-9 (Version None)
Quarter: 2006Q1

REPORT INFORMATION
  Report Type: 
  Country: None (occurrence: None)
  Receive Date: 20060221
  Receipt Date: 20060209
  Transmission Date: 20060701
  Serious: Yes (Other)
  Sender: FDA-Public Use
  Company Number: PHHO2006JP02611

PATIENT
  Sex: Male
  Weight: 46 kg

DRUGS (4)
  1. DIOVAN [Suspect]
     Indication: HYPERTENSION
     Dosage: 80 MG, QD
     Route: 048
     Dates: start: 20030514, end: 20050502
  2. CARNACULIN [Concomitant]
     Indication: HYPERTENSION
     Dosage: 150 MG, UNK
     Route: 048
     Dates: start: 20030514
  3. ALFAROL [Concomitant]
     Indication: OSTEOPOROSIS
     Dosage: 0.5 UG, UNK
     Route: 048
     Dates: start: 20030616
  4. ATELEC [Concomitant]
     Dosage: 10 MG, UNK
     Route: 048
     Dates: start: 20040325

REACTIONS (1)
  - BLADDER CANCER [None]
